FAERS Safety Report 17924824 (Version 1)
Quarter: 2020Q2

REPORT INFORMATION
  Report Type: Spontaneous
  Country: DE (occurrence: DE)
  Receive Date: 20200622
  Receipt Date: 20200622
  Transmission Date: 20200714
  Serious: Yes (Hospitalization)
  Sender: FDA-Public Use
  Company Number: DE-JNJFOC-20200619393

PATIENT
  Age: 38 Year
  Sex: Female

DRUGS (2)
  1. HALOPERIDOL. [Suspect]
     Active Substance: HALOPERIDOL
     Indication: PRODUCT USED FOR UNKNOWN INDICATION
     Dosage: NK MG
     Route: 065
     Dates: end: 20200323
  2. LORAZEPAM. [Concomitant]
     Active Substance: LORAZEPAM
     Dosage: 1 MG, 1-1-1-0
     Route: 048

REACTIONS (3)
  - Anxiety [Unknown]
  - Exposure during pregnancy [Unknown]
  - Electrolyte imbalance [Unknown]
